FAERS Safety Report 12455171 (Version 5)
Quarter: 2019Q3

REPORT INFORMATION
  Report Type: Spontaneous
  Country: US (occurrence: US)
  Receive Date: 20160610
  Receipt Date: 20190712
  Transmission Date: 20191004
  Serious: Yes (Hospitalization, Other)
  Sender: FDA-Public Use
  Company Number: US-DSJP-DSU-2016-110424

PATIENT

DRUGS (8)
  1. LEVOTHYROXINE. [Concomitant]
     Active Substance: LEVOTHYROXINE
     Indication: PRODUCT USED FOR UNKNOWN INDICATION
     Dosage: 112 ?G, QD
     Route: 048
  2. TRIBENZOR [Suspect]
     Active Substance: AMLODIPINE BESYLATE\HYDROCHLOROTHIAZIDE\OLMESARTAN MEDOXOMIL
     Indication: HYPERTENSION
     Dosage: 40/5/25 MG, QD
     Route: 048
     Dates: start: 2010, end: 20120406
  3. CALCIUM [Concomitant]
     Active Substance: CALCIUM
     Indication: PRODUCT USED FOR UNKNOWN INDICATION
     Dosage: 200 MG, BID
     Route: 048
  4. BENICAR [Suspect]
     Active Substance: OLMESARTAN MEDOXOMIL
     Indication: HYPERTENSION
     Dosage: 40 MG, QD
     Route: 048
     Dates: start: 20120406, end: 2014
  5. PREDNISONE. [Concomitant]
     Active Substance: PREDNISONE
     Indication: PRODUCT USED FOR UNKNOWN INDICATION
     Dosage: 5 MG, BID
     Route: 048
  6. ASPIRIN                            /00002701/ [Concomitant]
     Active Substance: ASPIRIN
     Indication: PRODUCT USED FOR UNKNOWN INDICATION
     Dosage: 81 MG, QD
     Route: 048
  7. AZOR [Suspect]
     Active Substance: AMLODIPINE BESYLATE\OLMESARTAN MEDOXOMIL
     Indication: HYPERTENSION
     Dosage: 5/40 MG, QD
     Dates: start: 2008, end: 2010
  8. VITAMIN D                          /00107901/ [Concomitant]
     Active Substance: ERGOCALCIFEROL
     Indication: PRODUCT USED FOR UNKNOWN INDICATION
     Dosage: 5000 UNITS, QD

REACTIONS (13)
  - Hypotension [Unknown]
  - Rectal polyp [Recovering/Resolving]
  - Autoimmune hepatitis [Recovering/Resolving]
  - Sprue-like enteropathy [Recovering/Resolving]
  - Acute kidney injury [Recovering/Resolving]
  - Osteoporosis [Unknown]
  - Constipation [Recovered/Resolved]
  - Gastric ulcer [Not Recovered/Not Resolved]
  - Umbilical hernia [Unknown]
  - Syncope [Unknown]
  - Hiatus hernia [Unknown]
  - Gastrooesophageal reflux disease [Not Recovered/Not Resolved]
  - Coeliac disease [Recovering/Resolving]

NARRATIVE: CASE EVENT DATE: 20101208
